FAERS Safety Report 4356921-1 (Version None)
Quarter: 2004Q2

REPORT INFORMATION
  Report Type: 
  Country: None (occurrence: None)
  Receive Date: 20040507
  Receipt Date: 20040427
  Transmission Date: 20050107
  Serious: Yes (Hospitalization)
  Sender: FDA-Public Use
  Company Number: JP-JNJFOC-20040500260

PATIENT
  Age: 56 Year
  Sex: Female
  Weight: 53 kg

DRUGS (5)
  1. REMICADE [Suspect]
     Indication: RHEUMATOID ARTHRITIS
     Dosage: 3 MG/KG, 1 IN 1 AS NECESSARY, INTRAVENOUS DRIP
     Route: 041
     Dates: start: 20040115, end: 20040115
  2. REMICADE [Suspect]
     Indication: RHEUMATOID ARTHRITIS
     Dosage: 3 MG/KG, 1 IN 1 AS NECESSARY, INTRAVENOUS DRIP
     Route: 041
     Dates: start: 20040209, end: 20040209
  3. REMICADE [Suspect]
     Indication: RHEUMATOID ARTHRITIS
     Dosage: 3 MG/KG, 1 IN 1 AS NECESSARY, INTRAVENOUS DRIP
     Route: 041
     Dates: start: 20040308, end: 20040308
  4. METHOTREXATE [Concomitant]
  5. ISONIAZID [Concomitant]

REACTIONS (5)
  - DRUG INEFFECTIVE [None]
  - EMPYEMA [None]
  - PLEURAL EFFUSION [None]
  - PNEUMONIA [None]
  - STREPTOCOCCAL INFECTION [None]
